FAERS Safety Report 9654689 (Version 2)
Quarter: 2013Q4

REPORT INFORMATION
  Report Type: Spontaneous
  Country: IT (occurrence: None)
  Receive Date: 20131028
  Receipt Date: 20131106
  Transmission Date: 20140711
  Serious: Yes (Death, Other)
  Sender: FDA-Public Use
  Company Number: 2013AP009162

PATIENT
  Age: 40 Year
  Sex: Male

DRUGS (1)
  1. QUETIAPINE (QUETIAPINE) [Suspect]
     Indication: PSYCHOTIC DISORDER
     Dosage: DOSE , FORM, ROUTE SND FREQUENCY UNKNOWN; PM

REACTIONS (3)
  - Constipation [None]
  - Ileus paralytic [None]
  - Conduction disorder [None]
